FAERS Safety Report 8557792-X (Version None)
Quarter: 2012Q3

REPORT INFORMATION
  Report Type: 
  Country: None (occurrence: None)
  Receive Date: 20120801
  Receipt Date: 20120727
  Transmission Date: 20120928
  Serious: Yes (Hospitalization, Other)
  Sender: FDA-Public Use
  Company Number: US-AMGEN-USASP2012047241

PATIENT
  Age: 54 Year
  Sex: Female

DRUGS (1)
  1. ENBREL [Suspect]
     Indication: RHEUMATOID ARTHRITIS
     Dosage: 50 MG, QWK
     Dates: start: 20030701, end: 20120701

REACTIONS (6)
  - HEAD INJURY [None]
  - KNEE ARTHROPLASTY [None]
  - HAEMARTHROSIS [None]
  - CONTUSION [None]
  - INCREASED TENDENCY TO BRUISE [None]
  - FALL [None]
